FAERS Safety Report 6817669-4 (Version None)
Quarter: 2010Q3

REPORT INFORMATION
  Report Type: 
  Country: None (occurrence: None)
  Receive Date: 20100706
  Receipt Date: 20100625
  Transmission Date: 20110219
  Serious: Yes (Hospitalization, Other)
  Sender: FDA-Public Use
  Company Number: DE-PFIZER INC-2010055710

PATIENT
  Sex: Male

DRUGS (9)
  1. ZYVOXID [Suspect]
     Indication: ENTEROCOCCAL INFECTION
     Dosage: 600 MG, 2X/DAY
     Route: 042
     Dates: start: 20091029, end: 20091121
  2. CEFTAZIDIME [Concomitant]
     Indication: SEPSIS
  3. IMIPENEM AND CILASTATIN [Concomitant]
     Indication: SEPSIS
  4. METRONIDAZOLE [Concomitant]
  5. VANCOMYCIN [Concomitant]
  6. CIPROFLOXACIN [Concomitant]
     Indication: SEPSIS
  7. NORADRENALINE [Concomitant]
     Indication: SEPSIS
  8. HEPARIN [Concomitant]
     Indication: THROMBOSIS PROPHYLAXIS
  9. ACETYLCYSTEINE [Concomitant]
     Indication: INCREASED VISCOSITY OF BRONCHIAL SECRETION

REACTIONS (2)
  - DEVICE RELATED SEPSIS [None]
  - REVERSIBLE POSTERIOR LEUKOENCEPHALOPATHY SYNDROME [None]
